FAERS Safety Report 5067443-7 (Version None)
Quarter: 2006Q3

REPORT INFORMATION
  Report Type: 
  Country: None (occurrence: None)
  Receive Date: 20060726
  Receipt Date: 20060705
  Transmission Date: 20061208
  Serious: Yes (Hospitalization)
  Sender: FDA-Public Use
  Company Number: 2006-BP-07744RO

PATIENT
  Age: 66 Year
  Sex: Female

DRUGS (7)
  1. LORAZEPAM [Suspect]
     Dosage: 10  MG ONCE PO
     Route: 048
  2. MIDAZOLAM HCL [Suspect]
     Dosage: 15 MG ONCE
  3. TRANYLCYPROMINE SULFATE [Suspect]
     Dosage: 100 MG ONCE PO
     Route: 048
  4. TRIFLUOPERAZINE HCL [Suspect]
     Dosage: 20 MG ONCE PO
     Route: 048
  5. FLUOXETINE [Suspect]
     Dosage: 60 MG ONCE PO
     Route: 048
  6. PANCURONIUM [Suspect]
     Dosage: 4 MG ONCE
  7. REMIFENTANIL (REMIFENTANIL) [Suspect]
     Dosage: 5.7 MCG KG HR IV
     Route: 042

REACTIONS (5)
  - EYE MOVEMENT DISORDER [None]
  - GENERAL PHYSICAL HEALTH DETERIORATION [None]
  - OXYGEN SATURATION DECREASED [None]
  - SEROTONIN SYNDROME [None]
  - TRISMUS [None]
